FAERS Safety Report 8068291-6 (Version None)
Quarter: 2012Q1

REPORT INFORMATION
  Report Type: 
  Country: None (occurrence: None)
  Receive Date: 20120124
  Receipt Date: 20111006
  Transmission Date: 20120608
  Serious: No
  Sender: FDA-Public Use
  Company Number: US-AMGEN-USASP2011051655

PATIENT
  Age: 73 Year
  Sex: Female

DRUGS (6)
  1. LISINOPRIL [Concomitant]
     Dosage: 1 UNK, QD
  2. PROLIA [Suspect]
     Indication: OSTEOPOROSIS POSTMENOPAUSAL
     Dosage: 60 MG, Q6MO
     Dates: start: 20110401, end: 20110101
  3. CALCIUM WITH VITAMIN D             /00944201/ [Concomitant]
  4. ALENDRONATE SODIUM [Concomitant]
     Dosage: 1 MG, QWK
  5. LOVASTATIN [Concomitant]
     Dosage: 1 UNK, QD
  6. VITAMIN C                          /00008001/ [Concomitant]
     Dosage: UNK UNK, PRN

REACTIONS (5)
  - MUSCLE SPASMS [None]
  - STOMATITIS [None]
  - HEADACHE [None]
  - SKIN EXFOLIATION [None]
  - DRY SKIN [None]
